FAERS Safety Report 7374352-7 (Version None)
Quarter: 2011Q1

REPORT INFORMATION
  Report Type: 
  Country: None (occurrence: None)
  Receive Date: 20110315
  Receipt Date: 20110301
  Transmission Date: 20110831
  Serious: Yes (Hospitalization, Other)
  Sender: FDA-Public Use
  Company Number: 2009001069

PATIENT
  Age: 75 Year
  Sex: Male
  Weight: 70.7 kg

DRUGS (10)
  1. ADALAT [Concomitant]
  2. ERLOTINIB (ERLOTINIB) (TABLET) (ERLOTINIB) [Suspect]
     Indication: NON-SMALL CELL LUNG CANCER
     Dosage: 150 MG, QD, ORAL
     Route: 048
     Dates: start: 20090226, end: 20090311
  3. EURODIN (ESTAZOLAM) [Concomitant]
  4. PLETAL [Concomitant]
  5. GASTGER (FAMOTIDINE) [Concomitant]
  6. ASPIRIN [Concomitant]
  7. FLUMETHOLON (FLUOROMETHOLONE) [Concomitant]
  8. ALLEGRA [Concomitant]
  9. LASIX [Concomitant]
  10. LOPERAMIDE HCL [Concomitant]

REACTIONS (10)
  - BALANCE DISORDER [None]
  - NEOPLASM MALIGNANT [None]
  - DRUG ERUPTION [None]
  - PERICARDITIS [None]
  - PLEURAL EFFUSION [None]
  - NON-SMALL CELL LUNG CANCER [None]
  - DEPRESSED LEVEL OF CONSCIOUSNESS [None]
  - CARDIAC FAILURE CONGESTIVE [None]
  - DIARRHOEA [None]
  - LEFT VENTRICULAR FAILURE [None]
